FAERS Safety Report 25440418 (Version 1)
Quarter: 2025Q2

REPORT INFORMATION
  Report Type: Spontaneous
  Country: US (occurrence: US)
  Receive Date: 20250616
  Receipt Date: 20250616
  Transmission Date: 20250717
  Serious: No
  Sender: MYLAN
  Company Number: US-MYLANLABS-2025M1049271

PATIENT

DRUGS (4)
  1. ISOSULFAN BLUE [Suspect]
     Active Substance: ISOSULFAN BLUE
     Indication: Product used for unknown indication
  2. ISOSULFAN BLUE [Suspect]
     Active Substance: ISOSULFAN BLUE
     Route: 065
  3. ISOSULFAN BLUE [Suspect]
     Active Substance: ISOSULFAN BLUE
     Route: 065
  4. ISOSULFAN BLUE [Suspect]
     Active Substance: ISOSULFAN BLUE

REACTIONS (4)
  - Hypotension [Unknown]
  - Drug hypersensitivity [Unknown]
  - Infusion related reaction [Unknown]
  - Product quality issue [Unknown]
